FAERS Safety Report 9916231 (Version 2)
Quarter: 2014Q1

REPORT INFORMATION
  Report Type: Spontaneous
  Country: US (occurrence: US)
  Receive Date: 20140221
  Receipt Date: 20140221
  Transmission Date: 20141002
  Serious: Yes (Other)
  Sender: FDA-Public Use
  Company Number: US-GE HEALTHCARE MEDICAL DIAGNOSTICS-OSCN-PR-0805S-0279

PATIENT
  Age: 29 Year
  Sex: Male

DRUGS (3)
  1. OMNISCAN [Suspect]
     Indication: STAPHYLOCOCCAL BACTERAEMIA
     Route: 042
     Dates: start: 20030210, end: 20030210
  2. OMNISCAN [Suspect]
     Indication: BACK PAIN
     Route: 042
     Dates: start: 20030213, end: 20030213
  3. OMNISCAN [Suspect]
     Indication: RENAL FAILURE CHRONIC

REACTIONS (1)
  - Nephrogenic systemic fibrosis [Not Recovered/Not Resolved]
